FAERS Safety Report 10784702 (Version 1)
Quarter: 2015Q1

REPORT INFORMATION
  Report Type: Spontaneous
  Country: US (occurrence: None)
  Receive Date: 20150209
  Receipt Date: 20150209
  Transmission Date: 20150721
  Serious: Yes (Hospitalization)
  Sender: FDA-Public Use
  Company Number: None

PATIENT
  Age: 23 Year
  Sex: Female
  Weight: 61 kg

DRUGS (2)
  1. CYTARABINE. [Suspect]
     Active Substance: CYTARABINE
     Dates: end: 20150120
  2. IDARUBICIN [Suspect]
     Active Substance: IDARUBICIN
     Dates: end: 20150118

REACTIONS (5)
  - Anxiety [None]
  - Staphylococcal infection [None]
  - Wheezing [None]
  - Pyrexia [None]
  - Neutropenic sepsis [None]

NARRATIVE: CASE EVENT DATE: 20150204
